FAERS Safety Report 25665847 (Version 3)
Quarter: 2025Q3

REPORT INFORMATION
  Report Type: Report from Study
  Country: US (occurrence: US)
  Receive Date: 20250811
  Receipt Date: 20250817
  Transmission Date: 20251021
  Serious: Yes (Other)
  Sender: ABBVIE
  Company Number: US-ABBVIE-6403757

PATIENT
  Age: 73 Year
  Sex: Male

DRUGS (1)
  1. VYALEV [Suspect]
     Active Substance: FOSCARBIDOPA\FOSLEVODOPA
     Indication: Parkinson^s disease
     Route: 058
     Dates: start: 20250623

REACTIONS (7)
  - Intestinal obstruction [Unknown]
  - Urinary tract infection [Unknown]
  - Discoloured vomit [Unknown]
  - Constipation [Unknown]
  - Pneumonia [Unknown]
  - Parkinson^s disease [Unknown]
  - Hospice care [Unknown]

NARRATIVE: CASE EVENT DATE: 20250101
